FAERS Safety Report 10459192 (Version 2)
Quarter: 2014Q3

REPORT INFORMATION
  Report Type: Report from Study
  Country: US (occurrence: US)
  Receive Date: 20140917
  Receipt Date: 20140917
  Transmission Date: 20150326
  Serious: Yes (Hospitalization, Other)
  Sender: FDA-Public Use
  Company Number: US-ACTELION-A-US2013-77824

PATIENT
  Age: 68 Year
  Sex: Female
  Weight: 148.3 kg

DRUGS (20)
  1. SILDENAFIL [Suspect]
     Active Substance: SILDENAFIL
     Indication: PULMONARY ARTERIAL HYPERTENSION
     Dosage: 40 MG, TID
     Route: 048
     Dates: start: 20050826
  2. ACETAMINOPHEN. [Concomitant]
     Active Substance: ACETAMINOPHEN
  3. ALBUTEROL. [Concomitant]
     Active Substance: ALBUTEROL
     Dosage: 720 MCG, UNK
  4. LOSARTAN [Concomitant]
     Active Substance: LOSARTAN
  5. METOPROLOL [Concomitant]
     Active Substance: METOPROLOL
  6. TRACLEER [Suspect]
     Active Substance: BOSENTAN\BOSENTAN MONOHYDRATE
     Indication: PULMONARY ARTERIAL HYPERTENSION
     Dosage: 62.5 MG, BID
     Route: 048
     Dates: start: 20080710
  7. SILDENAFIL [Suspect]
     Active Substance: SILDENAFIL
     Dosage: 120 MG, UNK
     Route: 048
     Dates: start: 20050826
  8. COUMADIN [Concomitant]
     Active Substance: WARFARIN SODIUM
     Dosage: 7.5 G, UNK
  9. TYVASO [Suspect]
     Active Substance: TREPROSTINIL
     Indication: PULMONARY ARTERIAL HYPERTENSION
     Dosage: 28 PUFF, UNK
     Route: 055
     Dates: start: 201004
  10. OXYGEN. [Suspect]
     Active Substance: OXYGEN
     Indication: PRODUCT USED FOR UNKNOWN INDICATION
     Dosage: 3-4 L/MIN, AT REST; 4L/MIN WITH EXERCISE
     Route: 045
  11. FERROUS SULFATE [Concomitant]
     Active Substance: FERROUS SULFATE\FERROUS SULFATE, DRIED
  12. LOPRAMIDE [Concomitant]
  13. OXYGEN. [Suspect]
     Active Substance: OXYGEN
     Dosage: 10 L/MIN, UNK
  14. LOMOTIL [Concomitant]
     Active Substance: ATROPINE SULFATE\DIPHENOXYLATE HYDROCHLORIDE
  15. TRACLEER [Suspect]
     Active Substance: BOSENTAN\BOSENTAN MONOHYDRATE
     Dosage: 125 MG, UNK
     Route: 048
     Dates: start: 20080710
  16. OXYGEN. [Suspect]
     Active Substance: OXYGEN
     Dosage: 6 L/MIN, WITH AMBULATION
  17. DIGOXIN. [Concomitant]
     Active Substance: DIGOXIN
  18. POTASSIUM CHLORIDE. [Concomitant]
     Active Substance: POTASSIUM CHLORIDE
  19. BUMETANIDE. [Concomitant]
     Active Substance: BUMETANIDE
  20. SPIRONOLACTONE. [Concomitant]
     Active Substance: SPIRONOLACTONE

REACTIONS (31)
  - Upper respiratory tract infection [Recovering/Resolving]
  - Wheezing [Recovered/Resolved]
  - Pulmonary oedema [Recovered/Resolved]
  - Epistaxis [Recovered/Resolved]
  - Bronchopneumonia [Recovered/Resolved]
  - Cough [Recovered/Resolved]
  - Rhonchi [Recovered/Resolved]
  - Blood bicarbonate increased [Unknown]
  - Cardiac murmur [Unknown]
  - Pyrexia [Recovered/Resolved]
  - Dyspnoea [Recovered/Resolved]
  - Malaise [Unknown]
  - Bronchitis viral [Recovered/Resolved]
  - Oedema peripheral [Unknown]
  - Atelectasis [Unknown]
  - Myalgia [Recovered/Resolved]
  - Heart rate irregular [Unknown]
  - Hypoxia [Recovered/Resolved]
  - Sinus congestion [Recovered/Resolved]
  - Venous pressure jugular increased [Unknown]
  - Skin warm [Unknown]
  - Pulmonary congestion [Unknown]
  - Crepitations [Recovered/Resolved]
  - Cardiac failure congestive [Unknown]
  - Oedema [Unknown]
  - Tachypnoea [Unknown]
  - Productive cough [Recovered/Resolved]
  - Rhinorrhoea [Recovered/Resolved]
  - Chills [Recovered/Resolved]
  - Pleuritic pain [Recovered/Resolved]
  - Rales [Recovered/Resolved]

NARRATIVE: CASE EVENT DATE: 20121219
